FAERS Safety Report 13842656 (Version 2)
Quarter: 2017Q4

REPORT INFORMATION
  Report Type: Spontaneous
  Country: SA (occurrence: SA)
  Receive Date: 20170808
  Receipt Date: 20171030
  Transmission Date: 20180320
  Serious: Yes (Hospitalization, Congenital Anomaly)
  Sender: FDA-Public Use
  Company Number: SA-NOVAST LABORATORIES, LTD-SA-2017NOV000048

PATIENT
  Age: 0 Year
  Sex: Male
  Weight: 2.7 kg

DRUGS (1)
  1. DESOGESTREL\ETHINYL ESTRADIOL [Suspect]
     Active Substance: DESOGESTREL\ETHINYL ESTRADIOL
     Indication: FOETAL EXPOSURE DURING PREGNANCY
     Dosage: UNK
     Route: 064
     Dates: start: 201310, end: 201401

REACTIONS (2)
  - Foetal exposure during pregnancy [Recovered/Resolved]
  - Cloacal exstrophy [Recovered/Resolved]

NARRATIVE: CASE EVENT DATE: 201310
